FAERS Safety Report 7942621-5 (Version None)
Quarter: 2011Q4

REPORT INFORMATION
  Report Type: 
  Country: None (occurrence: None)
  Receive Date: 20111128
  Receipt Date: 20111121
  Transmission Date: 20120403
  Serious: Yes (Other)
  Sender: FDA-Public Use
  Company Number: GR-BRISTOL-MYERS SQUIBB COMPANY-16240541

PATIENT
  Age: 11 Year
  Sex: Male

DRUGS (16)
  1. DOXORUBICIN HCL [Suspect]
  2. CISPLATIN [Suspect]
  3. MELPHALAN HYDROCHLORIDE [Suspect]
  4. PREDNISONE TAB [Suspect]
  5. CYTARABINE [Suspect]
  6. VINCRISTINE [Suspect]
  7. PROCARBAZINE HYDROCHLORIDE [Suspect]
  8. CYCLOPHOSPHAMIDE [Suspect]
  9. ETOPOSIDE [Suspect]
  10. BLEOMYCIN SULFATE [Suspect]
  11. DEXAMETHASONE [Suspect]
  12. VINBLASTINE SULFATE [Suspect]
  13. DACARBAZINE [Suspect]
  14. CHLORMETHINE HCL [Suspect]
  15. CARMUSTINE [Suspect]
  16. IFOSFAMIDE [Suspect]

REACTIONS (1)
  - MYELODYSPLASTIC SYNDROME [None]
